FAERS Safety Report 25340280 (Version 1)
Quarter: 2025Q2

REPORT INFORMATION
  Report Type: Spontaneous
  Country: US (occurrence: None)
  Receive Date: 20250521
  Receipt Date: 20250521
  Transmission Date: 20250716
  Serious: Yes (Other)
  Sender: SUPERNUS PHARMACEUTICALS, INC.
  Company Number: US-SUPERNUS Pharmaceuticals, Inc.-SUP202410-003709

PATIENT
  Age: 39 Year
  Sex: Male

DRUGS (3)
  1. QELBREE [Suspect]
     Active Substance: VILOXAZINE HYDROCHLORIDE
     Indication: Product used for unknown indication
  2. QELBREE [Suspect]
     Active Substance: VILOXAZINE HYDROCHLORIDE
  3. QELBREE [Suspect]
     Active Substance: VILOXAZINE HYDROCHLORIDE

REACTIONS (6)
  - Suicidal ideation [Unknown]
  - Weight decreased [Unknown]
  - Migraine [Unknown]
  - Headache [Unknown]
  - Nausea [Unknown]
  - Therapeutic product effect incomplete [Unknown]
